FAERS Safety Report 25004481 (Version 1)
Quarter: 2025Q1

REPORT INFORMATION
  Report Type: Spontaneous
  Country: US (occurrence: None)
  Receive Date: 20250222
  Receipt Date: 20250222
  Transmission Date: 20250409
  Serious: Yes (Other)
  Sender: FDA-CTU
  Company Number: None

PATIENT
  Age: 81 Year
  Sex: Female
  Weight: 68.04 kg

DRUGS (1)
  1. BUSPIRONE [Suspect]
     Active Substance: BUSPIRONE HYDROCHLORIDE
     Dosage: FREQUENCY : TWICE A DAY;?

REACTIONS (4)
  - Emotional disorder [None]
  - Anger [None]
  - Anger [None]
  - Nonspecific reaction [None]

NARRATIVE: CASE EVENT DATE: 20250219
